FAERS Safety Report 20576132 (Version 2)
Quarter: 2025Q2

REPORT INFORMATION
  Report Type: Report from Study
  Country: IT (occurrence: IT)
  Receive Date: 20220310
  Receipt Date: 20250602
  Transmission Date: 20250716
  Serious: Yes (Death, Other)
  Sender: AUROBINDO
  Company Number: IT-GRUNENTHAL-2022-101626

PATIENT
  Sex: Male

DRUGS (2)
  1. ACETAMINOPHEN [Suspect]
     Active Substance: ACETAMINOPHEN
     Indication: Pain
     Route: 065
  2. TRAMADOL HYDROCHLORIDE [Suspect]
     Active Substance: TRAMADOL HYDROCHLORIDE
     Indication: Pain
     Route: 065

REACTIONS (6)
  - Drug abuse [Fatal]
  - Death [Fatal]
  - Pulmonary oedema [Fatal]
  - Myocardial fibrosis [Fatal]
  - Overdose [Fatal]
  - Oedema [Fatal]
